FAERS Safety Report 7555821-3 (Version None)
Quarter: 2011Q2

REPORT INFORMATION
  Report Type: 
  Country: None (occurrence: None)
  Receive Date: 20110618
  Receipt Date: 20110517
  Transmission Date: 20111010
  Serious: Yes (Hospitalization)
  Sender: FDA-Public Use
  Company Number: FR-BAYER-2011-042843

PATIENT
  Age: 74 Year
  Sex: Male

DRUGS (10)
  1. PANTOPRAZOLE SODIUM [Concomitant]
     Dosage: 20 MG, HS
  2. SMECTA [SMECTITE] [Concomitant]
  3. ATORVASTATIN CALCIUM [Concomitant]
     Dosage: 60 MG, HS
  4. IMODIUM [Concomitant]
  5. CERIS [Concomitant]
     Dosage: 1 TAB MORNING AND EVENING
  6. RAMIPRIL [Concomitant]
     Dosage: 10 MG, QD IN THE MORNING
  7. ALLOPURINOL [Concomitant]
     Dosage: 300 MG, QD AT MID-DAY
  8. KARDEGIC [Concomitant]
     Dosage: 160 MG, QD AT MID-DAY
  9. GADAVIST [Suspect]
     Indication: NUCLEAR MAGNETIC RESONANCE IMAGING
     Dosage: 7.5 ML, ONCE
     Dates: start: 20110408, end: 20110408
  10. SECTRAL [Concomitant]
     Dosage: 200 MG, BID MORNING + EVENING

REACTIONS (2)
  - RENAL FAILURE [None]
  - OLIGURIA [None]
